FAERS Safety Report 8541694-9 (Version None)
Quarter: 2012Q3

REPORT INFORMATION
  Report Type: 
  Country: None (occurrence: None)
  Receive Date: 20120726
  Receipt Date: 20120711
  Transmission Date: 20120928
  Serious: Yes (Other)
  Sender: FDA-Public Use
  Company Number: CHPA2012US014624

PATIENT
  Age: 54 Year
  Sex: Female

DRUGS (5)
  1. SYMBICORT [Concomitant]
     Indication: DYSPNOEA
     Dosage: 2 PUFFS, UNK
     Dates: start: 20050101
  2. NICOTINE [Suspect]
     Indication: SMOKING CESSATION THERAPY
     Dosage: 14 MG, QD
     Route: 062
     Dates: start: 20120601
  3. COMBIVENT [Concomitant]
     Indication: DYSPNOEA
     Dosage: 2 PUFFS, UNK
     Dates: start: 20050101
  4. NICOTINE [Suspect]
     Dosage: 21 MG, QD
     Route: 062
     Dates: start: 20120601, end: 20120601
  5. BENEFIBER [Concomitant]
     Indication: DIARRHOEA
     Dosage: 2 TSP, TID
     Dates: start: 20050101

REACTIONS (4)
  - INCORRECT DRUG ADMINISTRATION DURATION [None]
  - GLOSSODYNIA [None]
  - DYSPNOEA [None]
  - CANDIDIASIS [None]
